FAERS Safety Report 12132286 (Version 1)
Quarter: 2016Q1

REPORT INFORMATION
  Report Type: Spontaneous
  Country: FR (occurrence: FR)
  Receive Date: 20160301
  Receipt Date: 20160301
  Transmission Date: 20160526
  Serious: Yes (Other)
  Sender: FDA-Public Use
  Company Number: FR-009507513-1602FRA012857

PATIENT
  Age: 63 Year
  Sex: Female

DRUGS (22)
  1. IFOSFAMIDE. [Suspect]
     Active Substance: IFOSFAMIDE
     Indication: CENTRAL NERVOUS SYSTEM LYMPHOMA
     Dosage: 2515 MG, ONCE (STRENGTH 40MG/ML)
     Route: 042
     Dates: start: 20151203
  2. ACTISKENAN [Suspect]
     Active Substance: MORPHINE SULFATE
     Indication: PAIN
     Dosage: UNK, ONCE (SINGLE DOSE)
     Route: 048
     Dates: start: 20151203, end: 20151203
  3. LEVETIRACETAM. [Concomitant]
     Active Substance: LEVETIRACETAM
     Dosage: 750 MG, BID
     Route: 048
     Dates: start: 20151204, end: 20151209
  4. ZOPICLONE [Concomitant]
     Active Substance: ZOPICLONE
     Dosage: ON 03, 05 AND 09-DEC-2015
     Dates: start: 20151203, end: 20151209
  5. PREDNISOLONE. [Concomitant]
     Active Substance: PREDNISOLONE
     Dosage: ON 03-DEC-2015 THEN 06-09 DEC-2015
     Route: 048
     Dates: start: 20151203, end: 20151209
  6. LEVETIRACETAM. [Concomitant]
     Active Substance: LEVETIRACETAM
     Dosage: 500 MG, BID
     Route: 048
     Dates: start: 20151202, end: 20151204
  7. MESNA. [Concomitant]
     Active Substance: MESNA
     Indication: PREMEDICATION
     Dosage: 755 MG, ONCE (1 SINGLE INTAKE)
     Route: 042
     Dates: start: 20151203, end: 20151204
  8. CYTARABINE. [Concomitant]
     Active Substance: CYTARABINE
     Indication: CENTRAL NERVOUS SYSTEM LYMPHOMA
     Dosage: 5050 MG, ONCE
     Route: 042
     Dates: start: 20151203
  9. PANTOPRAZOLE [Concomitant]
     Active Substance: PANTOPRAZOLE SODIUM
     Dosage: 20 MG, QD
     Route: 048
     Dates: start: 20151205, end: 20151209
  10. MIANSERIN HYDROCHLORIDE [Concomitant]
     Active Substance: MIANSERIN HYDROCHLORIDE
     Dosage: UNK
     Route: 048
     Dates: start: 20151203, end: 20151209
  11. MABTHERA [Concomitant]
     Active Substance: RITUXIMAB
     Indication: CENTRAL NERVOUS SYSTEM LYMPHOMA
     Dosage: 630 MG, ONCE (SINGLE INTAKE)
     Route: 042
     Dates: start: 20151203, end: 20151203
  12. CYTARABINE. [Concomitant]
     Active Substance: CYTARABINE
     Dosage: 5050 MG, ONCE
     Route: 042
     Dates: start: 20151205, end: 20151205
  13. ONDANSETRON HYDROCHLORIDE. [Concomitant]
     Active Substance: ONDANSETRON HYDROCHLORIDE
     Indication: PROPHYLAXIS OF NAUSEA AND VOMITING
     Dosage: 8 MG, QD (1 IN 1 DAY)
     Route: 042
     Dates: start: 20151203, end: 20151206
  14. POLARAMINE [Suspect]
     Active Substance: DEXCHLORPHENIRAMINE MALEATE
     Indication: PREMEDICATION
     Dosage: 5 MG, ONCE (STRENGTH 5 MG/1ML)
     Route: 042
     Dates: start: 20151203, end: 20151203
  15. ACETAMINOPHEN. [Concomitant]
     Active Substance: ACETAMINOPHEN
     Indication: PREMEDICATION
     Dosage: 1000 MG, ONCE (1 SINGLE DOSE ON 03-DEC-2015 THEN IF NEEDED)
     Route: 048
     Dates: start: 20151203
  16. PANTOPRAZOLE [Concomitant]
     Active Substance: PANTOPRAZOLE SODIUM
     Dosage: 20 MG, QD
     Route: 048
     Dates: start: 20151202, end: 20151203
  17. LOVENOX [Concomitant]
     Active Substance: ENOXAPARIN SODIUM
     Indication: PROPHYLAXIS
     Dosage: UNK
     Dates: start: 20151202, end: 20151209
  18. SKENAN [Suspect]
     Active Substance: MORPHINE SULFATE
     Indication: PAIN
     Dosage: 10 MG, BID (10 MG, 2 IN 1 DAY)
     Route: 048
     Dates: start: 20151202, end: 20151204
  19. POLYETHYLENE GLYCOL (MACROGOL) [Concomitant]
     Active Substance: POLYETHYLENE GLYCOLS
     Dosage: STRENGTH 4000, ON 03, 04 AND 07 AND 08-DEC-2015
     Route: 048
     Dates: start: 20151203, end: 20151208
  20. EMEND [Suspect]
     Active Substance: APREPITANT
     Indication: PROPHYLAXIS OF NAUSEA AND VOMITING
     Dosage: 125 MG, ONCE
     Route: 048
     Dates: start: 20151203, end: 20151203
  21. METHYLPREDNISOLONE. [Concomitant]
     Active Substance: METHYLPREDNISOLONE
     Indication: PREMEDICATION
     Dosage: 60 MG, QD
     Route: 042
     Dates: start: 20151203
  22. METHYLPREDNISOLONE. [Concomitant]
     Active Substance: METHYLPREDNISOLONE
     Dosage: 80 MG, QD (60 MG 1 IN 1 DAY)
     Route: 042
     Dates: start: 20151204, end: 20151205

REACTIONS (1)
  - Encephalopathy [Recovered/Resolved]

NARRATIVE: CASE EVENT DATE: 20151204
